FAERS Safety Report 15896217 (Version 1)
Quarter: 2019Q1

REPORT INFORMATION
  Report Type: Spontaneous
  Country: CN (occurrence: CN)
  Receive Date: 20190131
  Receipt Date: 20190131
  Transmission Date: 20190417
  Serious: Yes (Other)
  Sender: FDA-Public Use
  Company Number: CN-BAYER-2019-017058

PATIENT
  Sex: Female

DRUGS (1)
  1. BAYASPIRIN 100 MG [Suspect]
     Active Substance: ASPIRIN
     Dosage: UNK
     Route: 048

REACTIONS (7)
  - Tooth dislocation [Recovered/Resolved]
  - Hypertension [None]
  - Toothache [None]
  - Gingival bleeding [Not Recovered/Not Resolved]
  - Cardiac failure [None]
  - Abdominal discomfort [None]
  - Discomfort [None]

NARRATIVE: CASE EVENT DATE: 2017
